FAERS Safety Report 7328320-1 (Version None)
Quarter: 2011Q1

REPORT INFORMATION
  Report Type: 
  Country: None (occurrence: None)
  Receive Date: 20110222
  Receipt Date: 20110207
  Transmission Date: 20110831
  Serious: Yes (Hospitalization)
  Sender: FDA-Public Use
  Company Number: 2011P1003849

PATIENT
  Age: 57 Year
  Sex: Female
  Weight: 68.0396 kg

DRUGS (14)
  1. LEVOXYL [Concomitant]
  2. PROBIOTICS HA JOINT FORMULA [Concomitant]
  3. SIMVASTATIN [Concomitant]
  4. BONIVA [Concomitant]
  5. VITAMIN B-12 [Concomitant]
  6. POTASSIUM [Concomitant]
  7. WELLBUTRIN [Concomitant]
  8. CARAFATE [Concomitant]
  9. PENTASA [Concomitant]
  10. ALPRAZOLAM [Concomitant]
  11. ELIXIR [Concomitant]
  12. FENTANYL [Suspect]
     Indication: CROHN'S DISEASE
     Dosage: 100 MCG/HR; TDER
     Route: 062
     Dates: start: 20101001
  13. NORCO (HYDROCONE BITARTRATE AND ACETAMINOPHEN) [Concomitant]
  14. VITAMIN D [Concomitant]

REACTIONS (11)
  - CROHN'S DISEASE [None]
  - TOOTH DISORDER [None]
  - DIARRHOEA [None]
  - CONDITION AGGRAVATED [None]
  - GASTROOESOPHAGEAL REFLUX DISEASE [None]
  - ROTATOR CUFF SYNDROME [None]
  - HYPOKALAEMIA [None]
  - DEHYDRATION [None]
  - VOMITING [None]
  - GASTRITIS [None]
  - OSTEOARTHRITIS [None]
